FAERS Safety Report 13962066 (Version 1)
Quarter: 2017Q3

REPORT INFORMATION
  Report Type: Other
  Country: US (occurrence: US)
  Receive Date: 20170912
  Receipt Date: 20170912
  Transmission Date: 20171128
  Serious: Yes (Other)
  Sender: FDA-Public Use
  Company Number: US-THE PROACTIV LLC-2025931

PATIENT
  Age: 23 Year
  Sex: Female

DRUGS (3)
  1. PROACTIV RENEWING CLEANSER [Suspect]
     Active Substance: BENZOYL PEROXIDE
     Indication: ACNE
     Route: 061
     Dates: start: 201603, end: 201603
  2. PROACTIV REPAIRING TREATMENT [Suspect]
     Active Substance: BENZOYL PEROXIDE
     Route: 061
     Dates: start: 201603, end: 201603
  3. PROACTIV SOLUTION BLACKHEAD DISSOLVING [Suspect]
     Active Substance: SALICYLIC ACID
     Route: 061
     Dates: start: 201603, end: 201603

REACTIONS (1)
  - Swelling face [Recovered/Resolved]

NARRATIVE: CASE EVENT DATE: 201603
